FAERS Safety Report 6635322 (Version 23)
Quarter: 2014Q2

REPORT INFORMATION
  Report Type: Spontaneous
  Country: US (occurrence: US)
  Receive Date: 20080508
  Receipt Date: 20140413
  Transmission Date: 20141212
  Serious: Yes (Death, Hospitalization, Other)
  Sender: FDA-Public Use
  Company Number: PHEH2008US04229

PATIENT
  Age: 72 Year
  Sex: Male

DRUGS (13)
  1. AREDIA [Suspect]
     Indication: PLASMA CELL MYELOMA
     Route: 042
     Dates: start: 199707
  2. ZOMETA [Suspect]
     Indication: PLASMA CELL MYELOMA
     Route: 042
  3. ZOMETA [Suspect]
     Indication: BONE DISORDER
  4. CELEBREX [Concomitant]
  5. AUGMENTIN [Concomitant]
  6. CALCIUM WITH VITAMIN D [Concomitant]
  7. CHLORHEXIDINE [Concomitant]
  8. OXYCODONE [Concomitant]
     Dosage: 10 MG, BID
     Route: 048
  9. MAGNESIUM HYDROXIDE [Concomitant]
  10. SPIRONOLACTONE [Concomitant]
  11. BIAXIN [Concomitant]
     Dosage: 500 MG, UNK
  12. BENEMID [Concomitant]
  13. CHEMOTHERAPEUTICS [Concomitant]

REACTIONS (124)
  - Death [Fatal]
  - Osteonecrosis of jaw [Unknown]
  - Pain [Unknown]
  - Infection [Unknown]
  - Scar [Unknown]
  - Diaphragmatic paralysis [Unknown]
  - Dyspnoea [Unknown]
  - Diabetes mellitus [Unknown]
  - Femur fracture [Unknown]
  - Gait disturbance [Unknown]
  - Neoplasm progression [Unknown]
  - Osteoarthritis [Unknown]
  - Compression fracture [Unknown]
  - Intervertebral disc protrusion [Unknown]
  - Vertebral foraminal stenosis [Unknown]
  - Osteoporosis [Unknown]
  - Lumbar spinal stenosis [Unknown]
  - Lumbar vertebral fracture [Unknown]
  - Oedema peripheral [Unknown]
  - Back pain [Unknown]
  - Pleural effusion [Unknown]
  - Atelectasis [Unknown]
  - Gout [Unknown]
  - Prostate infection [Recovered/Resolved]
  - Toothache [Unknown]
  - Amnesia [Unknown]
  - Gingival bleeding [Unknown]
  - Impaired healing [Unknown]
  - Abscess [Unknown]
  - Herpes zoster [Unknown]
  - Dermatitis [Unknown]
  - Actinic keratosis [Unknown]
  - Basal cell carcinoma [Unknown]
  - Metastases to bone [Unknown]
  - Bone lesion [Unknown]
  - Spinal pain [Unknown]
  - Calculus bladder [Unknown]
  - Osteomyelitis [Unknown]
  - Pain in jaw [Unknown]
  - Pyelocaliectasis [Unknown]
  - Cardiomegaly [Unknown]
  - Haemorrhoids [Unknown]
  - Scoliosis [Unknown]
  - Neuropathy peripheral [Unknown]
  - Pathological fracture [Unknown]
  - Anaemia [Unknown]
  - Leukopenia [Unknown]
  - Arthropathy [Unknown]
  - Malignant neoplasm progression [Unknown]
  - Protein urine present [Unknown]
  - Constipation [Unknown]
  - Osteolysis [Unknown]
  - Rotator cuff syndrome [Unknown]
  - Pain in extremity [Unknown]
  - Blood cholesterol increased [Unknown]
  - Spinal osteoarthritis [Unknown]
  - Osteopenia [Unknown]
  - Tenderness [Unknown]
  - Pelvic pain [Unknown]
  - Swelling [Unknown]
  - Pneumonia [Unknown]
  - Intervertebral disc degeneration [Unknown]
  - Bone disorder [Unknown]
  - Chondropathy [Unknown]
  - Respiratory distress [Unknown]
  - Bronchiectasis [Unknown]
  - Ileus [Unknown]
  - Lung consolidation [Unknown]
  - Abdominal pain [Unknown]
  - Meningocele [Unknown]
  - Spondylolisthesis [Unknown]
  - Fall [Unknown]
  - Respiratory failure [Unknown]
  - Respiratory acidosis [Unknown]
  - Malnutrition [Unknown]
  - Failure to thrive [Unknown]
  - Benign prostatic hyperplasia [Unknown]
  - Tachycardia [Unknown]
  - Hyperglycaemia [Unknown]
  - Urinary tract infection [Unknown]
  - Diverticulum intestinal [Unknown]
  - Hand fracture [Unknown]
  - Haemangioma [Unknown]
  - Thrombosis [Unknown]
  - Joint swelling [Unknown]
  - Mass [Unknown]
  - Bone marrow infiltration [Unknown]
  - Gingivitis [Unknown]
  - Clavicle fracture [Unknown]
  - Tinnitus [Unknown]
  - Mental status changes [Unknown]
  - Bone marrow reticulin fibrosis [Unknown]
  - Ecchymosis [Unknown]
  - Device related infection [Unknown]
  - Febrile neutropenia [Unknown]
  - Kyphosis [Unknown]
  - Oedema [Unknown]
  - Musculoskeletal chest pain [Unknown]
  - Astigmatism [Unknown]
  - Cataract [Unknown]
  - Cutis laxa [Unknown]
  - Dental alveolar anomaly [Unknown]
  - Haematuria [Unknown]
  - Hip fracture [Unknown]
  - Haemorrhage [Unknown]
  - Inflammation [Unknown]
  - Cholecystitis acute [Unknown]
  - Fracture [Unknown]
  - Aortic arteriosclerosis [Unknown]
  - Aortic calcification [Unknown]
  - Hypocalcaemia [Unknown]
  - Deep vein thrombosis [Unknown]
  - Intervertebral disc space narrowing [Unknown]
  - Erythema [Unknown]
  - Musculoskeletal pain [Unknown]
  - Arthralgia [Unknown]
  - Weight decreased [Unknown]
  - Fatigue [Unknown]
  - Granuloma [Unknown]
  - Bone fragmentation [Unknown]
  - Osteitis [Unknown]
  - Periodontal disease [Unknown]
  - Muscular weakness [Unknown]
  - Purulent discharge [Unknown]
